FAERS Safety Report 19361795 (Version 1)
Quarter: 2021Q2

REPORT INFORMATION
  Report Type: Spontaneous
  Country: RU (occurrence: RU)
  Receive Date: 20210601
  Receipt Date: 20210601
  Transmission Date: 20210717
  Serious: Yes (Death, Other)
  Sender: FDA-Public Use
  Company Number: RU-PFIZER INC-2021567006

PATIENT
  Age: 60 Year
  Sex: Male

DRUGS (1)
  1. CAMPTO CS [Suspect]
     Active Substance: IRINOTECAN HYDROCHLORIDE
     Indication: NON-SMALL CELL LUNG CANCER METASTATIC
     Dosage: UNK, WEEKLY

REACTIONS (5)
  - Asthenia [Unknown]
  - Death [Fatal]
  - Polyneuropathy [Unknown]
  - Paralysis [Unknown]
  - Off label use [Unknown]
